FAERS Safety Report 20733880 (Version 1)
Quarter: 2022Q2

REPORT INFORMATION
  Report Type: Report from Study
  Country: ES (occurrence: ES)
  Receive Date: 20220421
  Receipt Date: 20220421
  Transmission Date: 20220721
  Serious: Yes (Other)
  Sender: FDA-Public Use
  Company Number: ES-ABBVIE-22K-144-4363501-00

PATIENT
  Sex: Female

DRUGS (2)
  1. CARBIDOPA\LEVODOPA [Suspect]
     Active Substance: CARBIDOPA\LEVODOPA
     Indication: Parkinson^s disease
     Route: 050
     Dates: start: 20190416, end: 2022
  2. CARBIDOPA\LEVODOPA [Suspect]
     Active Substance: CARBIDOPA\LEVODOPA
     Dosage: CONTINUOUS DOSE 2.0 ML/H, EXTRA DOSE 3.6 ML, MORNING DOSE 5.0 ML, 16 HOURS OF INFUSION
     Route: 050
     Dates: start: 2022

REACTIONS (8)
  - Dyspnoea [Not Recovered/Not Resolved]
  - Respiration abnormal [Not Recovered/Not Resolved]
  - Psychiatric symptom [Recovering/Resolving]
  - Mobility decreased [Recovering/Resolving]
  - Agitation [Not Recovered/Not Resolved]
  - Somnolence [Recovering/Resolving]
  - On and off phenomenon [Unknown]
  - Device issue [Unknown]

NARRATIVE: CASE EVENT DATE: 20220101
